FAERS Safety Report 5246193-8 (Version None)
Quarter: 2007Q1

REPORT INFORMATION
  Report Type: 
  Country: None (occurrence: None)
  Receive Date: 20070220
  Receipt Date: 20070206
  Transmission Date: 20070707
  Serious: Yes (Hospitalization)
  Sender: FDA-Public Use
  Company Number: 2005JP001684

PATIENT
  Sex: Male
  Weight: 74 kg

DRUGS (3)
  1. PROTOPIC [Suspect]
     Indication: DERMATITIS ATOPIC
     Dosage: 5 G, D, TOPICAL
     Route: 061
  2. MYSER (DIFLUPREDNATE) EXTERNAL [Concomitant]
  3. KINDAVATE (CLORBETASONE BUTYRATE) OINTMENT [Concomitant]

REACTIONS (3)
  - CELL MARKER INCREASED [None]
  - CHROMOSOME ABNORMALITY [None]
  - NON-HODGKIN'S LYMPHOMA [None]
